FAERS Safety Report 20711481 (Version 2)
Quarter: 2022Q2

REPORT INFORMATION
  Report Type: Spontaneous
  Country: DE (occurrence: DE)
  Receive Date: 20220414
  Receipt Date: 20220502
  Transmission Date: 20220720
  Serious: Yes (Disabling, Other)
  Sender: FDA-Public Use
  Company Number: DE-GE HEALTHCARE-2022CSU001559

PATIENT
  Sex: Male
  Weight: 76 kg

DRUGS (4)
  1. CLARISCAN [Suspect]
     Active Substance: GADOTERATE MEGLUMINE
     Indication: Magnetic resonance imaging
     Dosage: UNK, SINGLE
     Route: 042
     Dates: start: 20220220, end: 20220220
  2. CLARISCAN [Suspect]
     Active Substance: GADOTERATE MEGLUMINE
     Indication: Syncope
     Dosage: UNK
     Route: 042
     Dates: start: 20220220, end: 20220220
  3. CLARISCAN [Suspect]
     Active Substance: GADOTERATE MEGLUMINE
     Indication: Seizure
  4. CLARISCAN [Suspect]
     Active Substance: GADOTERATE MEGLUMINE
     Indication: Diarrhoea

REACTIONS (12)
  - Bladder necrosis [Unknown]
  - Anorectal disorder [Not Recovered/Not Resolved]
  - Contrast media deposition [Not Recovered/Not Resolved]
  - Urine ketone body present [Unknown]
  - Haematuria [Unknown]
  - Urine abnormality [Unknown]
  - White blood cells urine positive [Unknown]
  - Red blood cells urine positive [Unknown]
  - Protein urine present [Unknown]
  - Constipation [Unknown]
  - Micturition urgency [Not Recovered/Not Resolved]
  - Pain [Unknown]

NARRATIVE: CASE EVENT DATE: 20220201
